FAERS Safety Report 17688652 (Version 1)
Quarter: 2020Q2

REPORT INFORMATION
  Report Type: Spontaneous
  Country: US (occurrence: US)
  Receive Date: 20200420
  Receipt Date: 20200420
  Transmission Date: 20200714
  Serious: No
  Sender: FDA-Public Use
  Company Number: None

PATIENT
  Age: 59 Year
  Sex: Male

DRUGS (1)
  1. CAPECITABINE TAB 500MG [Suspect]
     Active Substance: CAPECITABINE
     Dosage: ?          OTHER DOSE:NOT AVAILABLE;?
     Route: 048
     Dates: start: 202004

REACTIONS (2)
  - Rash [None]
  - Change of bowel habit [None]

NARRATIVE: CASE EVENT DATE: 20200420
